FAERS Safety Report 9508951 (Version 1)
Quarter: 2013Q3

REPORT INFORMATION
  Report Type: Spontaneous
  Country: US (occurrence: US)
  Receive Date: 20130909
  Receipt Date: 20130909
  Transmission Date: 20140515
  Serious: No
  Sender: FDA-Public Use
  Company Number: US-BRISTOL-MYERS SQUIBB COMPANY-19073311

PATIENT
  Age: 67 Year
  Sex: Female
  Weight: 68.48 kg

DRUGS (2)
  1. ABILIFY [Suspect]
     Indication: DEPRESSION
     Dates: start: 20130611
  2. PROZAC [Suspect]
     Dosage: 20MG EVERY MORNING AND 40MG AT NIGHT

REACTIONS (8)
  - Fatigue [Unknown]
  - Pruritus [Unknown]
  - Weight decreased [Unknown]
  - Vision blurred [Unknown]
  - Dysphemia [Unknown]
  - Fall [Unknown]
  - Headache [Unknown]
  - Dyspnoea [Unknown]
